FAERS Safety Report 9443877 (Version 3)
Quarter: 2013Q3

REPORT INFORMATION
  Report Type: Report from Study
  Country: DE (occurrence: DE)
  Receive Date: 20130806
  Receipt Date: 20130926
  Transmission Date: 20140515
  Serious: No
  Sender: FDA-Public Use
  Company Number: PHHY2013DE083239

PATIENT
  Sex: Male

DRUGS (9)
  1. AMN107 [Suspect]
     Indication: CHRONIC MYELOID LEUKAEMIA
     Dosage: 600 MG, PER DAY
     Route: 048
     Dates: start: 20130111
  2. PREDNISOLON [Concomitant]
     Dosage: 5 MG, UNK
  3. RAMIPRIL [Concomitant]
     Dosage: 5 MG, UNK
  4. METOPROLOL [Concomitant]
     Dosage: UNK UKN, PRN
  5. FUROSEMID ^DAK^ [Concomitant]
     Dosage: 40 MG, UNK
  6. SPIRONOLACTON [Concomitant]
     Dosage: 50 MG, UNK
  7. ALLOPURINOL [Concomitant]
     Dosage: 300 MG, UNK
  8. ACETYLSALICYLIC ACID [Concomitant]
     Dosage: 100 MG, UNK
  9. DICLOFENAC [Concomitant]
     Dosage: 75 MG, UNK

REACTIONS (6)
  - Myalgia [Recovered/Resolved]
  - Decreased appetite [Unknown]
  - Asthenia [Unknown]
  - Pain in extremity [Recovered/Resolved]
  - Sleep disorder [Recovered/Resolved]
  - Abdominal pain upper [Recovered/Resolved]
